FAERS Safety Report 21766876 (Version 1)
Quarter: 2022Q4

REPORT INFORMATION
  Report Type: Spontaneous
  Country: US (occurrence: US)
  Receive Date: 20221222
  Receipt Date: 20221222
  Transmission Date: 20230112
  Serious: Yes (Other)
  Sender: FDA-Public Use
  Company Number: US-SUNOVION-2022SUN003475

PATIENT
  Sex: Female
  Weight: 86.168 kg

DRUGS (5)
  1. APTIOM [Suspect]
     Active Substance: ESLICARBAZEPINE ACETATE
     Indication: Seizure
     Dosage: 600 MG, QD
     Route: 048
     Dates: start: 2020
  2. APTIOM [Suspect]
     Active Substance: ESLICARBAZEPINE ACETATE
     Indication: Partial seizures
     Dosage: 800 MG, QD
     Route: 048
     Dates: start: 2020
  3. APTIOM [Suspect]
     Active Substance: ESLICARBAZEPINE ACETATE
     Dosage: 1000 MG, QD
     Route: 048
     Dates: start: 202105
  4. APTIOM [Suspect]
     Active Substance: ESLICARBAZEPINE ACETATE
     Dosage: 1200 MG (1TAB OF 800MG AND HALF OF 800MG), QD
     Route: 048
     Dates: start: 202202
  5. APTIOM [Suspect]
     Active Substance: ESLICARBAZEPINE ACETATE
     Dosage: 1400 MG (1 TAB OF 800MG AND 600MG), QD
     Route: 048
     Dates: start: 202212

REACTIONS (5)
  - Generalised tonic-clonic seizure [Unknown]
  - Loss of consciousness [Unknown]
  - Seizure [Unknown]
  - Aphasia [Unknown]
  - Off label use [Unknown]

NARRATIVE: CASE EVENT DATE: 20200101
